FAERS Safety Report 4319391-5 (Version None)
Quarter: 2004Q1

REPORT INFORMATION
  Report Type: 
  Country: None (occurrence: None)
  Receive Date: 20040316
  Receipt Date: 20040302
  Transmission Date: 20041129
  Serious: Yes (Death)
  Sender: FDA-Public Use
  Company Number: 2003-BP-06225PF

PATIENT
  Age: 92 Year
  Sex: Female

DRUGS (7)
  1. SPIRIVA [Suspect]
     Dosage: 18 MCG (18 MCG) IH
     Route: 055
  2. AMIODOFONA [Concomitant]
  3. NIMOTOP [Concomitant]
  4. HYDROCHLOROTHIAZIDE [Concomitant]
  5. AMIKIN [Concomitant]
  6. ASPIRIN [Concomitant]
  7. ISOPTIN TAB [Concomitant]

REACTIONS (2)
  - CARDIAC FAILURE [None]
  - PNEUMONIA [None]
